FAERS Safety Report 9551574 (Version 1)
Quarter: 2013Q3

REPORT INFORMATION
  Report Type: Spontaneous
  Country: US (occurrence: None)
  Receive Date: 20130724
  Receipt Date: 20130724
  Transmission Date: 20140515
  Serious: Yes (Other)
  Sender: FDA-Public Use
  Company Number: PHEH2013US005853

PATIENT
  Sex: Male
  Weight: 70.3 kg

DRUGS (13)
  1. GLEEVEC (IMATINIB) TABLET, 100MG [Suspect]
     Indication: GASTROINTESTINAL STROMAL TUMOUR
     Dosage: 1 DF, ON TUESDAYS, THURSDAYS, SATURDAYS AND SUNDAYS, ORAL
     Route: 048
     Dates: start: 20130215
  2. CYCLOPHOSPHAMIDE (CYCLOPHOSPHAMIDE) [Concomitant]
  3. PREDNISONE (PREDNISONE) [Concomitant]
  4. ZOLPIDEM (ZOLPIDEM) [Concomitant]
  5. PANTOPRAZOLE (PANTOPRAZOLE) [Concomitant]
  6. CHLORPROMAZINE (CHLORPROMAZINE) [Concomitant]
  7. ALENDRONATE (ALENADRONATE SODIUM) [Concomitant]
  8. RENO (CHLORPHENAMINE MALEATE,PARACETAMOL, PHENYLPROPANOLOAMINE HYDROCHLORIDE) [Concomitant]
  9. METOPROLOL (METOPROLOL) [Concomitant]
  10. DEXILANT (DEXLANSOPRAZOLE) [Concomitant]
  11. BACTRIM DS (SULFAMETHOXAZOLE, TRIMETHOPRIM) [Concomitant]
  12. VITAMIN B COMPLEX (VITAMIN B COMPLEX) [Concomitant]
  13. VITAMIN D (ERGOCALIFEROL) [Concomitant]

REACTIONS (6)
  - Convulsion [None]
  - Concomitant disease progression [None]
  - Hiccups [None]
  - Nausea [None]
  - Vomiting [None]
  - Diarrhoea [None]
